FAERS Safety Report 7897938-X (Version None)
Quarter: 2011Q4

REPORT INFORMATION
  Report Type: 
  Country: None (occurrence: None)
  Receive Date: 20111107
  Receipt Date: 20111031
  Transmission Date: 20120403
  Serious: Yes (Hospitalization, Other)
  Sender: FDA-Public Use
  Company Number: US-ABBOTT-11P-163-0858105-00

PATIENT
  Sex: Male
  Weight: 121.9 kg

DRUGS (22)
  1. METHOCARBAMOL [Concomitant]
     Indication: MUSCLE SPASMS
     Dosage: 1 TABLET 3 TIMES A DAY AS NEEDED
     Route: 048
  2. PSYLLIUM 50%/DEXTRO [Concomitant]
     Indication: PRODUCT USED FOR UNKNOWN INDICATION
     Dosage: DAILY; 1 TBLS MIXED IN 8 OZ JUICE/WATER
  3. HUMIRA [Suspect]
     Indication: ANKYLOSING SPONDYLITIS
     Dates: start: 20080804
  4. VICODIN [Concomitant]
     Indication: PAIN
     Dosage: 1 TAB Q 6 HRS AS NEEDED
     Route: 048
  5. DICLOFENAC SODIUM [Concomitant]
     Indication: PRODUCT USED FOR UNKNOWN INDICATION
     Route: 048
  6. TAMSULOSIN HCL [Concomitant]
     Indication: PRODUCT USED FOR UNKNOWN INDICATION
     Route: 048
  7. METHOCARBAMOL [Concomitant]
     Indication: MUSCLE RELAXANT THERAPY
  8. SODIUM FLUORIDE [Concomitant]
     Indication: PRODUCT USED FOR UNKNOWN INDICATION
     Dosage: 2 MINUTES EVERY AM + PM ,AS DIRECTED
  9. FLUOCINONIDE [Concomitant]
     Indication: PRODUCT USED FOR UNKNOWN INDICATION
     Dosage: DAILY, APPLY TO RED SCALY AREAS ON SCALP
  10. DM 10/GUAIFENESIN [Concomitant]
     Indication: COUGH
     Dosage: 1-2 TEASPOONFUL EVERY 6 HOURS
     Route: 048
  11. OMEPRAZOLE [Concomitant]
     Indication: HYPERCHLORHYDRIA
     Dosage: DAILY, 30 MINUTES BEFORE A MEAL
     Route: 048
  12. KETOCONAZOLE [Concomitant]
     Indication: PRODUCT USED FOR UNKNOWN INDICATION
     Dosage: TWICE A WEEK, WITH 3 DAYS IN BETWEEN
  13. MICONAZOLE NITRATE [Concomitant]
     Indication: PRODUCT USED FOR UNKNOWN INDICATION
     Dosage: EVERY DAY, ON GROIN
  14. LORATADINE [Concomitant]
     Indication: PRODUCT USED FOR UNKNOWN INDICATION
     Route: 048
  15. HUMIRA [Suspect]
     Dosage: INTERRUPTED
  16. MENTHOL W/METHYL SALICYLATE [Concomitant]
     Indication: PRODUCT USED FOR UNKNOWN INDICATION
     Dosage: APPLY TO MUSCLES TWICE DAILY
  17. BEN GAY [Concomitant]
     Indication: MYALGIA
     Dosage: TWICE A DAY
  18. ZOLPIDEM TARTRATE [Concomitant]
     Indication: INSOMNIA
     Dosage: AT BEDTIME
     Route: 048
  19. DOCUSATE [Concomitant]
     Indication: CONSTIPATION
     Route: 048
  20. PSEUDOEPHEDRINE HCL [Concomitant]
     Indication: RESPIRATORY TRACT CONGESTION
     Dosage: 1 TABLET TWICE A DAY AS NEEDED
     Route: 048
  21. METHOCARBAMOL [Concomitant]
     Indication: PROPHYLAXIS
  22. AMMONIUM LACTATE [Concomitant]
     Indication: PRODUCT USED FOR UNKNOWN INDICATION
     Dosage: APPLY TO FEET EVERY DAY
     Route: 061

REACTIONS (13)
  - BASAL CELL CARCINOMA [None]
  - COLON ADENOMA [None]
  - SINUSITIS [None]
  - SINUS CONGESTION [None]
  - TINEA PEDIS [None]
  - PHARYNGITIS [None]
  - FUNGAL SKIN INFECTION [None]
  - NEUROPATHY PERIPHERAL [None]
  - NAIL DISCOLOURATION [None]
  - ONYCHOGRYPHOSIS [None]
  - SKIN MASS [None]
  - SCIATICA [None]
  - PIRIFORMIS SYNDROME [None]
